FAERS Safety Report 5055787-4 (Version None)
Quarter: 2006Q3

REPORT INFORMATION
  Report Type: 
  Country: None (occurrence: None)
  Receive Date: 20060720
  Receipt Date: 20060711
  Transmission Date: 20061208
  Serious: Yes (Hospitalization)
  Sender: FDA-Public Use
  Company Number: FR-JNJFOC-20060606507

PATIENT
  Age: 62 Year
  Sex: Male
  Weight: 76 kg

DRUGS (17)
  1. REMICADE [Suspect]
     Route: 042
  2. REMICADE [Suspect]
     Route: 042
  3. REMICADE [Suspect]
     Route: 042
  4. REMICADE [Suspect]
     Route: 042
  5. REMICADE [Suspect]
     Indication: POLYARTHRITIS
     Route: 042
  6. REMICADE [Suspect]
     Indication: VASCULITIS
     Route: 042
  7. METHOTREXATE [Concomitant]
     Indication: POLYARTHRITIS
     Route: 030
  8. MEDROL [Concomitant]
     Indication: POLYARTHRITIS
     Route: 048
  9. RENITEC [Concomitant]
     Route: 065
  10. HYPERIUM [Concomitant]
     Route: 065
  11. SECTRAL [Concomitant]
     Route: 065
  12. ASPIRIN [Concomitant]
     Route: 065
  13. XATRAL [Concomitant]
     Route: 065
  14. CACIT [Concomitant]
     Route: 065
  15. ACTONEL [Concomitant]
     Route: 065
  16. INSULINE NPH [Concomitant]
     Route: 065
  17. SPECIAFOLDINE [Concomitant]
     Route: 065

REACTIONS (1)
  - MYCOBACTERIUM CHELONEI INFECTION [None]
